FAERS Safety Report 11205330 (Version 2)
Quarter: 2015Q3

REPORT INFORMATION
  Report Type: Spontaneous
  Country: US (occurrence: US)
  Receive Date: 20150622
  Receipt Date: 20150908
  Transmission Date: 20151125
  Serious: No
  Sender: FDA-Public Use
  Company Number: US-GLAXOSMITHKLINE-US2015086468

PATIENT
  Age: 66 Year
  Sex: Male

DRUGS (9)
  1. ADVAIR DISKUS [Suspect]
     Active Substance: FLUTICASONE PROPIONATE\SALMETEROL XINAFOATE
     Indication: EMPHYSEMA
     Dosage: 1 PUFF(S), 1D
     Route: 055
     Dates: start: 2011
  2. RANITIDINE [Concomitant]
     Active Substance: RANITIDINE\RANITIDINE HYDROCHLORIDE
  3. ATORVASTATIN [Concomitant]
     Active Substance: ATORVASTATIN
  4. OXYCODONE [Concomitant]
     Active Substance: OXYCODONE
  5. INCRUSE ELLIPTA [Suspect]
     Active Substance: UMECLIDINIUM BROMIDE
     Indication: PRODUCT USED FOR UNKNOWN INDICATION
  6. TAMSULOSIN [Concomitant]
     Active Substance: TAMSULOSIN
  7. AMITIZA [Concomitant]
     Active Substance: LUBIPROSTONE
  8. METOPROLOL [Concomitant]
     Active Substance: METOPROLOL
  9. ADVAIR DISKUS [Suspect]
     Active Substance: FLUTICASONE PROPIONATE\SALMETEROL XINAFOATE
     Indication: CHRONIC OBSTRUCTIVE PULMONARY DISEASE
     Dosage: 1 PUFF(S), 1D
     Route: 055
     Dates: start: 20150722

REACTIONS (15)
  - Lacrimation increased [Recovering/Resolving]
  - Underdose [Not Recovered/Not Resolved]
  - Ageusia [Not Recovered/Not Resolved]
  - Swollen tongue [Recovering/Resolving]
  - Skin disorder [Not Recovered/Not Resolved]
  - Wrong technique in product usage process [Unknown]
  - Visual field defect [Not Recovered/Not Resolved]
  - Speech disorder [Recovering/Resolving]
  - Panic reaction [Not Recovered/Not Resolved]
  - Vision blurred [Recovering/Resolving]
  - Pollakiuria [Not Recovered/Not Resolved]
  - Drug dose omission [Unknown]
  - Anosmia [Not Recovered/Not Resolved]
  - Hypoaesthesia oral [Recovering/Resolving]
  - Dizziness [Not Recovered/Not Resolved]

NARRATIVE: CASE EVENT DATE: 20150401
